FAERS Safety Report 14795289 (Version 5)
Quarter: 2020Q1

REPORT INFORMATION
  Report Type: Spontaneous
  Country: US (occurrence: US)
  Receive Date: 20180423
  Receipt Date: 20200103
  Transmission Date: 20200409
  Serious: No
  Sender: FDA-Public Use
  Company Number: US-ACTELION-A-NJ2018-170395

PATIENT
  Sex: Female

DRUGS (9)
  1. ATORVASTATIN CALCIUM. [Concomitant]
     Active Substance: ATORVASTATIN CALCIUM
  2. PREDNISONE. [Concomitant]
     Active Substance: PREDNISONE
  3. AMOXICILLIN. [Concomitant]
     Active Substance: AMOXICILLIN
  4. ALLOPURINOL. [Concomitant]
     Active Substance: ALLOPURINOL
  5. FUROSEMIDE. [Concomitant]
     Active Substance: FUROSEMIDE
  6. VITAMIN D [Concomitant]
     Active Substance: VITAMIN D NOS
  7. HYDROXYCHLOROQUINE SULFATE. [Concomitant]
     Active Substance: HYDROXYCHLOROQUINE SULFATE
  8. OPSUMIT [Suspect]
     Active Substance: MACITENTAN
     Indication: PULMONARY ARTERIAL HYPERTENSION
     Dosage: 10 MG, QD
     Route: 048
     Dates: start: 20180117
  9. DILTIAZEM HCL [Concomitant]
     Active Substance: DILTIAZEM HYDROCHLORIDE

REACTIONS (5)
  - Sarcoidosis [Unknown]
  - Tooth extraction [Unknown]
  - Osteoporosis [Unknown]
  - Weight fluctuation [Unknown]
  - Diarrhoea [Not Recovered/Not Resolved]
